FAERS Safety Report 16396767 (Version 2)
Quarter: 2019Q4

REPORT INFORMATION
  Report Type: Report from Study
  Country: CL (occurrence: CL)
  Receive Date: 20190606
  Receipt Date: 20191102
  Transmission Date: 20200122
  Serious: Yes (Death, Hospitalization)
  Sender: FDA-Public Use
  Company Number: CL-ROCHE-2329387

PATIENT
  Age: 84 Year
  Sex: Male

DRUGS (1)
  1. TECENTRIQ [Suspect]
     Active Substance: ATEZOLIZUMAB
     Indication: BLADDER CANCER
     Route: 042
     Dates: start: 20190411, end: 20190524

REACTIONS (7)
  - Blood creatinine increased [Unknown]
  - Gastric dilatation [Unknown]
  - Muscular weakness [Unknown]
  - Vomiting [Unknown]
  - Renal failure [Unknown]
  - Blood potassium increased [Unknown]
  - Death [Fatal]

NARRATIVE: CASE EVENT DATE: 20190522
